FAERS Safety Report 4785528-7 (Version None)
Quarter: 2005Q3

REPORT INFORMATION
  Report Type: 
  Country: None (occurrence: None)
  Receive Date: 20050929
  Receipt Date: 20050916
  Transmission Date: 20060218
  Serious: Yes (Disabling, Other)
  Sender: FDA-Public Use
  Company Number: 2005119828

PATIENT
  Age: 62 Year
  Sex: Female
  Weight: 81.6475 kg

DRUGS (6)
  1. ACCUPRIL [Suspect]
     Indication: HYPERTENSION
     Dosage: 20 MG (20 MG, QD INTERVAL:  EVERY DAY), ORAL
     Route: 048
  2. XALATAN [Suspect]
     Indication: GLAUCOMA
     Dosage: QD INTERVAL:  EVERY DAY
  3. PREMPRO [Concomitant]
  4. MOBIC [Concomitant]
  5. ALPRAZOLAM [Concomitant]
  6. ;OVASTATIN (LOVASTATIN) [Concomitant]

REACTIONS (3)
  - ACCIDENT AT WORK [None]
  - GLAUCOMA [None]
  - JOINT INJURY [None]
